FAERS Safety Report 7373734-7 (Version None)
Quarter: 2011Q1

REPORT INFORMATION
  Report Type: 
  Country: None (occurrence: None)
  Receive Date: 20110315
  Receipt Date: 20110309
  Transmission Date: 20110831
  Serious: Yes (Life-Threatening)
  Sender: FDA-Public Use
  Company Number: 2011SP010755

PATIENT
  Age: 78 Year
  Sex: Male

DRUGS (1)
  1. TEMODAL [Suspect]
     Indication: GLIOBLASTOMA MULTIFORME
     Dosage: 75 MG/KG;QD;PO
     Route: 048
     Dates: start: 20110101, end: 20110304

REACTIONS (1)
  - COLITIS ISCHAEMIC [None]
